FAERS Safety Report 5926461-4 (Version None)
Quarter: 2008Q4

REPORT INFORMATION
  Report Type: 
  Country: None (occurrence: None)
  Receive Date: 20081022
  Receipt Date: 20081013
  Transmission Date: 20090506
  Serious: Yes (Hospitalization, Other)
  Sender: FDA-Public Use
  Company Number: US-BAYER-200831268NA

PATIENT
  Age: 72 Year
  Sex: Male
  Weight: 83 kg

DRUGS (15)
  1. MAGNEVIST [Suspect]
     Indication: NUCLEAR MAGNETIC RESONANCE IMAGING
     Dates: start: 20080806, end: 20080806
  2. TIMOLOL [Concomitant]
  3. FORMOTERAL FUM [Concomitant]
  4. LABETALOL HCL [Concomitant]
  5. ASPIRIN [Concomitant]
     Dosage: AS USED: 81 MG
  6. ALBUT/IPRATOP [Concomitant]
  7. DONEPEZIL HCL [Concomitant]
  8. ZOCOR [Concomitant]
  9. CALCITRIOL [Concomitant]
  10. AGGRENOX [Concomitant]
  11. NEPHROCAPS [Concomitant]
  12. HYDRALAZINE HCL [Concomitant]
  13. FLUNISOLIDE [Concomitant]
  14. NYSTATIN CR [Concomitant]
  15. OMEPRAZOLE [Concomitant]

REACTIONS (9)
  - ASTHENIA [None]
  - CONFUSIONAL STATE [None]
  - DECREASED APPETITE [None]
  - DRUG TOXICITY [None]
  - GAIT DISTURBANCE [None]
  - HEADACHE [None]
  - MEMORY IMPAIRMENT [None]
  - MENTAL STATUS CHANGES [None]
  - NERVOUS SYSTEM DISORDER [None]
